FAERS Safety Report 11745814 (Version 1)
Quarter: 2015Q4

REPORT INFORMATION
  Report Type: Spontaneous
  Country: None (occurrence: None)
  Receive Date: 20151116
  Receipt Date: 20151116
  Transmission Date: 20160304
  Serious: No
  Sender: FDA-Public Use
  Company Number: None

PATIENT
  Age: 34 Year
  Sex: Male
  Weight: 77.11 kg

DRUGS (7)
  1. ZUBSOLV [Suspect]
     Active Substance: BUPRENORPHINE HYDROCHLORIDE\NALOXONE HYDROCHLORIDE
     Indication: DRUG DEPENDENCE
     Dosage: 1 PILL, TAKEN UNDER THE TONGUE
  2. IBPROPHIN [Concomitant]
  3. GLUCOSIMINE CONDROTON [Concomitant]
  4. SUBOXONE [Suspect]
     Active Substance: BUPRENORPHINE HYDROCHLORIDE\NALOXONE HYDROCHLORIDE
     Indication: DRUG DEPENDENCE
     Dosage: 1/2 STRIP/DAY TO 3 AT 1 POINT, TAKEN UNDER THE TONGUE
  5. EFFEXOR [Concomitant]
     Active Substance: VENLAFAXINE HYDROCHLORIDE
  6. XANAX [Concomitant]
     Active Substance: ALPRAZOLAM
  7. MSM [Concomitant]
     Active Substance: DIMETHYL SULFONE

REACTIONS (4)
  - Bursitis [None]
  - Arthralgia [None]
  - Arthritis [None]
  - Restless legs syndrome [None]

NARRATIVE: CASE EVENT DATE: 20141112
